FAERS Safety Report 7979076-0 (Version None)
Quarter: 2011Q4

REPORT INFORMATION
  Report Type: 
  Country: None (occurrence: None)
  Receive Date: 20111214
  Receipt Date: 20111209
  Transmission Date: 20120403
  Serious: No
  Sender: FDA-Public Use
  Company Number: US-PFIZER INC-2011301203

PATIENT
  Sex: Male

DRUGS (4)
  1. WARFARIN SODIUM [Concomitant]
     Dosage: UNK
  2. COZAAR [Concomitant]
     Dosage: UNK
  3. FLECTOR [Suspect]
     Indication: ARTHRITIS
     Dosage: UNK
     Dates: start: 20100101, end: 20100101
  4. FUROSEMIDE [Concomitant]
     Dosage: UNK

REACTIONS (1)
  - PURPURA [None]
